FAERS Safety Report 25476912 (Version 2)
Quarter: 2025Q3

REPORT INFORMATION
  Report Type: Spontaneous
  Country: AR (occurrence: AR)
  Receive Date: 20250625
  Receipt Date: 20250712
  Transmission Date: 20251020
  Serious: Yes (Death)
  Sender: AMGEN
  Company Number: AR-AMGEN-ARGSP2025124039

PATIENT

DRUGS (1)
  1. REPATHA [Suspect]
     Active Substance: EVOLOCUMAB
     Indication: Product used for unknown indication
     Route: 065

REACTIONS (1)
  - Cardiac disorder [Fatal]
